FAERS Safety Report 9176127 (Version 1)
Quarter: 2012Q4

REPORT INFORMATION
  Report Type: 
  Country: US (occurrence: US)
  Receive Date: 20120921
  Receipt Date: 20120921
  Transmission Date: 20130627
  Serious: Yes (Other)
  Sender: FDA-Public Use
  Company Number: US-RB-044573-12

PATIENT
  Age: 0 None
  Sex: Female

DRUGS (3)
  1. SUBOXONE FILM [Suspect]
     Indication: DRUG DEPENDENCE
     Dosage: Suboxone film
     Route: 064
     Dates: start: 201110, end: 201202
  2. GENERIC BUPRENORPHINE [Suspect]
     Indication: DRUG DEPENDENCE
     Dosage: 1-2 mg daily
     Route: 064
     Dates: start: 201202, end: 20120712
  3. NICOTINE [Suspect]
     Indication: TOBACCO ABUSE
     Dosage: 10 cigarettes per day
     Route: 064
     Dates: start: 201110, end: 20120712

REACTIONS (3)
  - Foetal exposure during pregnancy [Recovered/Resolved]
  - Neonatal aspiration [Recovered/Resolved]
  - Drug withdrawal syndrome neonatal [Not Recovered/Not Resolved]
